FAERS Safety Report 10143859 (Version 19)
Quarter: 2017Q4

REPORT INFORMATION
  Report Type: Report from Study
  Country: US (occurrence: US)
  Receive Date: 20140430
  Receipt Date: 20171101
  Transmission Date: 20180320
  Serious: Yes (Other)
  Sender: FDA-Public Use
  Company Number: US-SA-2013SA117700

PATIENT
  Age: 59 Year
  Sex: Female
  Weight: 54 kg

DRUGS (25)
  1. LOMOTIL [Concomitant]
     Active Substance: ATROPINE SULFATE\DIPHENOXYLATE HYDROCHLORIDE
     Dates: start: 201012
  2. PROGESTERONE. [Concomitant]
     Active Substance: PROGESTERONE
     Indication: MENOPAUSE
     Dosage: COMPOUND CREAM APPLY AT BEDTIME
     Dates: start: 201303
  3. VITAMIN D3 [Concomitant]
     Active Substance: CHOLECALCIFEROL
     Dates: start: 201011
  4. AUBAGIO [Suspect]
     Active Substance: TERIFLUNOMIDE
     Indication: MULTIPLE SCLEROSIS
     Dosage: STRENGTH 14 MG
     Route: 048
     Dates: start: 20140204
  5. LOMOTIL [Concomitant]
     Active Substance: ATROPINE SULFATE\DIPHENOXYLATE HYDROCHLORIDE
  6. LIDOCAINE. [Concomitant]
     Active Substance: LIDOCAINE
     Indication: PAIN
     Dosage: 5% PATCH?1 PATCH DAILY?12 HRS ON/12 OFF
     Dates: start: 201011
  7. BENADRYL [Concomitant]
     Active Substance: DIPHENHYDRAMINE HYDROCHLORIDE
  8. AUBAGIO [Suspect]
     Active Substance: TERIFLUNOMIDE
     Indication: MULTIPLE SCLEROSIS
     Dosage: STRENGTH 7 MG
     Route: 048
     Dates: start: 20131112, end: 20140203
  9. AUBAGIO [Suspect]
     Active Substance: TERIFLUNOMIDE
     Indication: MULTIPLE SCLEROSIS
     Dosage: STRENGTH 7 MG
     Route: 048
     Dates: start: 20131112, end: 20140203
  10. ZOLPIDEM [Concomitant]
     Active Substance: ZOLPIDEM\ZOLPIDEM TARTRATE
     Indication: SLEEP DISORDER
     Dosage: BEDTIME
     Dates: start: 201103
  11. RITALIN [Concomitant]
     Active Substance: METHYLPHENIDATE HYDROCHLORIDE
  12. NEURONTIN [Suspect]
     Active Substance: GABAPENTIN
     Route: 065
  13. ALPRAZOLAM. [Concomitant]
     Active Substance: ALPRAZOLAM
     Indication: ANXIETY
     Dates: start: 201008
  14. AUBAGIO [Suspect]
     Active Substance: TERIFLUNOMIDE
     Indication: MULTIPLE SCLEROSIS
     Dosage: STRENGTH 7 MG
     Route: 048
     Dates: start: 20131112, end: 20140203
  15. REMERON [Concomitant]
     Active Substance: MIRTAZAPINE
     Indication: DEPRESSION
     Dosage: BEDTIME
     Dates: start: 201101
  16. TIZANIDINE. [Concomitant]
     Active Substance: TIZANIDINE
     Indication: MUSCLE SPASMS
     Dosage: BEDTIME
     Dates: start: 201101
  17. ADDERALL [Concomitant]
     Active Substance: AMPHETAMINE ASPARTATE\AMPHETAMINE SULFATE\DEXTROAMPHETAMINE SACCHARATE\DEXTROAMPHETAMINE SULFATE
  18. ESTRADIOL/NORETHINDRONE ACETATE [Concomitant]
     Dosage: TRANSDERMAL PATCH
  19. CALCIUM PHOSPHATE DIBASIC/FERROUS SUCCINATE/MAGNESIUM HYDROXIDE [Concomitant]
     Indication: RED BLOOD CELL COUNT DECREASED
     Dosage: 1 IN AM AND 1 IN PM
     Dates: start: 201011
  20. NEURONTIN [Suspect]
     Active Substance: GABAPENTIN
     Route: 065
  21. REMERON [Concomitant]
     Active Substance: MIRTAZAPINE
     Indication: DEPRESSION
     Dosage: STRENGTH: 15 MG
     Dates: start: 201204
  22. BUSPAR [Concomitant]
     Active Substance: BUSPIRONE HYDROCHLORIDE
  23. NEURONTIN [Suspect]
     Active Substance: GABAPENTIN
     Route: 065
  24. ESTRADIOL. [Concomitant]
     Active Substance: ESTRADIOL
     Indication: MENOPAUSE
     Dosage: 0.375  ?1 DOT 2 TIMES A WEEK
  25. IRON [Concomitant]
     Active Substance: IRON
     Indication: BLOOD IRON DECREASED
     Dosage: THRICE WEEKLY
     Dates: start: 201309

REACTIONS (85)
  - Loss of employment [Unknown]
  - Erythema [Unknown]
  - Weight increased [Recovering/Resolving]
  - Myalgia [Unknown]
  - Abdominal distension [Not Recovered/Not Resolved]
  - Balance disorder [Recovering/Resolving]
  - Renal disorder [Not Recovered/Not Resolved]
  - Limb discomfort [Recovering/Resolving]
  - Condition aggravated [Not Recovered/Not Resolved]
  - Muscular weakness [Not Recovered/Not Resolved]
  - Paraesthesia [Not Recovered/Not Resolved]
  - Limb injury [Not Recovered/Not Resolved]
  - Joint injury [Recovered/Resolved]
  - Dyspnoea [Unknown]
  - Abdominal distension [Unknown]
  - Mobility decreased [Not Recovered/Not Resolved]
  - Pain in extremity [Unknown]
  - Abnormal faeces [Not Recovered/Not Resolved]
  - Muscle spasms [Unknown]
  - Gallbladder non-functioning [Recovered/Resolved]
  - Burning sensation [Unknown]
  - Feeling cold [Recovering/Resolving]
  - Frequent bowel movements [Unknown]
  - Gastrooesophageal reflux disease [Unknown]
  - Thyroid function test abnormal [Recovered/Resolved]
  - Abdominal pain [Not Recovered/Not Resolved]
  - Peripheral swelling [Unknown]
  - Joint stiffness [Not Recovered/Not Resolved]
  - Speech disorder [Recovered/Resolved]
  - Alopecia [Recovering/Resolving]
  - Road traffic accident [Unknown]
  - Chest injury [Recovered/Resolved]
  - Feeling abnormal [Unknown]
  - Lip dry [Unknown]
  - Malaise [Unknown]
  - Abdominal discomfort [Recovering/Resolving]
  - Pain [Not Recovered/Not Resolved]
  - Weight increased [Not Recovered/Not Resolved]
  - Vitamin B6 increased [Unknown]
  - Hot flush [Unknown]
  - Gastrointestinal disorder [Unknown]
  - Nasopharyngitis [Unknown]
  - Anxiety [Recovering/Resolving]
  - Hair growth abnormal [Not Recovered/Not Resolved]
  - Hypoaesthesia [Unknown]
  - Hepatic enzyme increased [Recovered/Resolved]
  - Fall [Not Recovered/Not Resolved]
  - Hormone level abnormal [Unknown]
  - Electromyogram abnormal [Not Recovered/Not Resolved]
  - Pain in extremity [Not Recovered/Not Resolved]
  - Pain [Unknown]
  - Swollen tongue [Recovered/Resolved]
  - Stress [Recovering/Resolving]
  - Fatigue [Unknown]
  - Back pain [Unknown]
  - Weight fluctuation [Unknown]
  - Sensation of foreign body [Recovered/Resolved]
  - Swelling [Not Recovered/Not Resolved]
  - Peroneal nerve palsy [Not Recovered/Not Resolved]
  - Dysphagia [Recovered/Resolved]
  - Carpal tunnel syndrome [Not Recovered/Not Resolved]
  - Ligament rupture [Not Recovered/Not Resolved]
  - Elbow operation [Recovered/Resolved]
  - Hypoaesthesia [Unknown]
  - Weight decreased [Unknown]
  - Eating disorder [Unknown]
  - Hypoaesthesia oral [Recovering/Resolving]
  - Musculoskeletal discomfort [Unknown]
  - Vomiting [Unknown]
  - Hypoaesthesia [Not Recovered/Not Resolved]
  - Oedema peripheral [Unknown]
  - White blood cell count decreased [Not Recovered/Not Resolved]
  - Exophthalmos [Unknown]
  - Tongue discolouration [Recovered/Resolved]
  - Muscular weakness [Unknown]
  - Cognitive disorder [Unknown]
  - Nervousness [Unknown]
  - Economic problem [Unknown]
  - Dry mouth [Recovered/Resolved]
  - Diarrhoea [Recovering/Resolving]
  - Arthralgia [Unknown]
  - Joint injury [Recovered/Resolved]
  - Alopecia [Recovering/Resolving]
  - Sensory disturbance [Unknown]
  - Hypoaesthesia oral [Recovered/Resolved]

NARRATIVE: CASE EVENT DATE: 2013
